FAERS Safety Report 7601416-2 (Version None)
Quarter: 2011Q4

REPORT INFORMATION
  Report Type: 
  Country: None (occurrence: None)
  Receive Date: 20110711
  Receipt Date: 20110629
  Transmission Date: 20120403
  Serious: Yes (Hospitalization)
  Sender: FDA-Public Use
  Company Number: US-MERCK-1106USA01348

PATIENT
  Age: 78 Year
  Sex: Female
  Weight: 55 kg

DRUGS (4)
  1. ZOCOR [Suspect]
     Indication: CORONARY ARTERY DISEASE
     Route: 048
     Dates: end: 20100501
  2. ZOCOR [Suspect]
     Indication: HYPERLIPIDAEMIA
     Route: 048
     Dates: end: 20100501
  3. CLARITHROMYCIN [Suspect]
     Route: 065
  4. VERAPAMIL [Concomitant]
     Route: 065

REACTIONS (19)
  - HYPOMAGNESAEMIA [None]
  - OSTEOPOROSIS [None]
  - ATELECTASIS [None]
  - HELICOBACTER INFECTION [None]
  - RHABDOMYOLYSIS [None]
  - DIZZINESS POSTURAL [None]
  - MITRAL VALVE INCOMPETENCE [None]
  - EROSIVE OESOPHAGITIS [None]
  - GASTROINTESTINAL HAEMORRHAGE [None]
  - HYPERTENSION [None]
  - AORTIC VALVE INCOMPETENCE [None]
  - DYSLIPIDAEMIA [None]
  - TYPE 2 DIABETES MELLITUS [None]
  - PEPTIC ULCER [None]
  - CHRONIC OBSTRUCTIVE PULMONARY DISEASE [None]
  - THYROID MASS [None]
  - RENAL FAILURE ACUTE [None]
  - TRICUSPID VALVE INCOMPETENCE [None]
  - DEHYDRATION [None]
